FAERS Safety Report 25838427 (Version 1)
Quarter: 2025Q3

REPORT INFORMATION
  Report Type: Report from Study
  Country: EU (occurrence: EU)
  Receive Date: 20250923
  Receipt Date: 20250923
  Transmission Date: 20251020
  Serious: Yes (Hospitalization)
  Sender: ABBVIE
  Company Number: EU-JNJFOC-20250928898

PATIENT
  Age: 78 Year
  Sex: Male

DRUGS (5)
  1. IMBRUVICA [Suspect]
     Active Substance: IBRUTINIB
     Indication: Chronic lymphocytic leukaemia
     Dosage: AS PER PRESCRIPTION, DOSE FORM :OTHER
     Route: 048
     Dates: start: 20211218
  2. ALLOPURINOL [Concomitant]
     Active Substance: ALLOPURINOL
     Indication: Product used for unknown indication
     Dosage: ROUTE: OTHER
     Route: 050
  3. LANSOPRAZOLE [Concomitant]
     Active Substance: LANSOPRAZOLE
     Indication: Product used for unknown indication
  4. Losamel [Concomitant]
     Indication: Product used for unknown indication
     Dosage: ROA : OTHER
  5. VALTREX [Concomitant]
     Active Substance: VALACYCLOVIR HYDROCHLORIDE
     Indication: Product used for unknown indication

REACTIONS (1)
  - Hip surgery [Recovered/Resolved]

NARRATIVE: CASE EVENT DATE: 20250805
